FAERS Safety Report 4978868-X (Version None)
Quarter: 2006Q2

REPORT INFORMATION
  Report Type: 
  Country: None (occurrence: None)
  Receive Date: 20060417
  Receipt Date: 20060405
  Transmission Date: 20061013
  Serious: Yes (Disabling)
  Sender: FDA-Public Use
  Company Number: 223099

PATIENT
  Age: 56 Year
  Sex: Female

DRUGS (8)
  1. RITUXAN [Suspect]
     Indication: NON-HODGKIN'S LYMPHOMA
     Dosage: SEE IMAGE, INTRAVENOUS
     Route: 042
     Dates: start: 20060307, end: 20060307
  2. RITUXAN [Suspect]
     Indication: NON-HODGKIN'S LYMPHOMA
     Dosage: SEE IMAGE, INTRAVENOUS
     Route: 042
     Dates: start: 20060307
  3. IBUPROFEN [Concomitant]
  4. POLARAMINE [Concomitant]
  5. FLUCONAZOLE [Concomitant]
  6. MUCOSTA (REBAMIPIDE) [Concomitant]
  7. FAMOTIDINE [Concomitant]
  8. ALLOPURINOL [Concomitant]

REACTIONS (6)
  - BLOOD PRESSURE DIASTOLIC DECREASED [None]
  - BRAIN STEM INFARCTION [None]
  - HYPOAESTHESIA ORAL [None]
  - INFUSION RELATED REACTION [None]
  - PYREXIA [None]
  - VOMITING [None]
